FAERS Safety Report 7037868-9 (Version None)
Quarter: 2010Q4

REPORT INFORMATION
  Report Type: 
  Country: None (occurrence: None)
  Receive Date: 20101011
  Receipt Date: 20101006
  Transmission Date: 20110411
  Serious: Yes (Life-Threatening, Hospitalization, Disabling)
  Sender: FDA-Public Use
  Company Number: GB-SHIRE-SPV1-2010-01731

PATIENT
  Age: 32 Year
  Sex: Male

DRUGS (4)
  1. MEZAVANT XL [Suspect]
     Indication: COLITIS ULCERATIVE
     Dosage: 1.2 G, UNKNOWN
     Route: 048
     Dates: start: 20100401, end: 20100915
  2. ASACOL [Concomitant]
     Indication: PRODUCT USED FOR UNKNOWN INDICATION
     Dates: start: 20030101
  3. IMODIUM [Concomitant]
     Indication: PRODUCT USED FOR UNKNOWN INDICATION
     Dates: start: 20030101
  4. PREDFOAM [Concomitant]
     Indication: PRODUCT USED FOR UNKNOWN INDICATION
     Dates: start: 20030101

REACTIONS (2)
  - HAEMORRHAGE INTRACRANIAL [None]
  - PARAESTHESIA [None]
